FAERS Safety Report 23123672 (Version 1)
Quarter: 2023Q4

REPORT INFORMATION
  Report Type: Spontaneous
  Country: PL (occurrence: PL)
  Receive Date: 20231030
  Receipt Date: 20231030
  Transmission Date: 20240109
  Serious: Yes (Other)
  Sender: FDA-Public Use
  Company Number: PL-002147023-NVSC2023PL226102

PATIENT

DRUGS (1)
  1. RUXOLITINIB [Suspect]
     Active Substance: RUXOLITINIB
     Indication: Acute lymphocytic leukaemia
     Dosage: 80 MG/M2, QD
     Route: 065

REACTIONS (7)
  - Aplasia [Unknown]
  - Diabetes mellitus [Unknown]
  - Cardiovascular disorder [Unknown]
  - Hypothyroidism [Unknown]
  - Inflammatory marker increased [Unknown]
  - Polyneuropathy [Unknown]
  - Product use in unapproved indication [Unknown]
